FAERS Safety Report 8578642-1 (Version None)
Quarter: 2012Q3

REPORT INFORMATION
  Report Type: 
  Country: None (occurrence: None)
  Receive Date: 20120808
  Receipt Date: 20120801
  Transmission Date: 20120928
  Serious: Yes (Life-Threatening, Hospitalization)
  Sender: FDA-Public Use
  Company Number: US-SANOFI-AVENTIS-2012SA015636

PATIENT
  Age: 58 Year
  Sex: Male
  Weight: 121.7 kg

DRUGS (26)
  1. GLIPIZIDE [Concomitant]
     Route: 048
     Dates: start: 20100825
  2. LISINOPRIL [Concomitant]
     Route: 048
     Dates: start: 20100521
  3. HERBAL PREPARATION [Concomitant]
     Route: 048
  4. DORZOLAMIDE [Concomitant]
     Route: 047
     Dates: start: 20101018
  5. ROSUVASTATIN [Concomitant]
     Route: 048
     Dates: start: 20080606
  6. SERTRALINE HYDROCHLORIDE [Concomitant]
     Route: 048
     Dates: start: 20110118
  7. ASPIRIN [Concomitant]
     Route: 048
  8. DOCETAXEL [Suspect]
     Indication: PROSTATE CANCER METASTATIC
     Route: 042
     Dates: start: 20110930, end: 20110930
  9. DOCETAXEL [Suspect]
     Route: 042
     Dates: start: 20120223, end: 20120223
  10. BISOPROLOL FUMARATE [Concomitant]
     Route: 048
     Dates: start: 20080606
  11. GOSERELIN [Concomitant]
     Route: 058
     Dates: start: 20110924
  12. PIOGLITAZONE [Concomitant]
     Route: 048
     Dates: start: 20100521
  13. FOLIC ACID [Concomitant]
     Route: 048
  14. ST MARY'S THISTLE [Concomitant]
     Route: 048
  15. ACYCLOVIR [Concomitant]
     Route: 048
     Dates: start: 20101020
  16. EZETIMIBE [Concomitant]
     Route: 048
     Dates: start: 20080606
  17. METFORMIN HYDROCHLORIDE [Concomitant]
     Route: 048
     Dates: start: 20100521
  18. FISH OIL [Concomitant]
     Route: 048
  19. GARLIC [Concomitant]
     Route: 048
  20. BIOTIN [Concomitant]
     Route: 048
  21. CARBOXYMETHYLCELLULOSE SODIUM [Concomitant]
     Route: 047
     Dates: start: 20101206
  22. PREDNISONE [Suspect]
     Indication: PROSTATE CANCER METASTATIC
     Route: 048
     Dates: start: 20110930, end: 20120305
  23. DOXYCYCLINE HYCLATE [Concomitant]
     Route: 048
     Dates: start: 20110819
  24. HYDROCORTISONE [Concomitant]
     Route: 048
     Dates: start: 20110701
  25. CALCIUM [Concomitant]
     Route: 048
  26. CHOLECALCIFEROL [Concomitant]
     Route: 048

REACTIONS (1)
  - ENCEPHALOPATHY [None]
